FAERS Safety Report 17419441 (Version 1)
Quarter: 2020Q1

REPORT INFORMATION
  Report Type: Spontaneous
  Country: US (occurrence: US)
  Receive Date: 20200214
  Receipt Date: 20200214
  Transmission Date: 20200409
  Serious: Yes (Death)
  Sender: FDA-Public Use
  Company Number: None

PATIENT
  Age: 58 Year
  Sex: Female

DRUGS (6)
  1. ZOMETA INJ 4MG/5ML [Concomitant]
     Dates: start: 20170608, end: 20200213
  2. PROCHLORPER TAB 10MG [Concomitant]
     Dates: start: 20191205, end: 20200213
  3. FASLODEX INJ 250MG [Concomitant]
     Dates: start: 20190930, end: 20200213
  4. HERCEPTIN INJ 440MG [Concomitant]
     Dates: start: 20170608, end: 20200213
  5. PIQRAY [Suspect]
     Active Substance: ALPELISIB
     Indication: BREAST CANCER
     Dosage: ?          OTHER FREQUENCY:PER PT DOSING CARD;?
     Route: 048
     Dates: start: 20190930, end: 20200213
  6. PERJETA INJ 420/14ML [Concomitant]
     Dates: start: 20170608, end: 20200213

REACTIONS (1)
  - Death [None]

NARRATIVE: CASE EVENT DATE: 20200213
